FAERS Safety Report 22686849 (Version 5)
Quarter: 2023Q4

REPORT INFORMATION
  Report Type: Report from Study
  Country: MX (occurrence: MX)
  Receive Date: 20230710
  Receipt Date: 20231121
  Transmission Date: 20240110
  Serious: Yes (Hospitalization, Other)
  Sender: FDA-Public Use
  Company Number: MX-002147023-NVSC2023MX148637

PATIENT

DRUGS (1)
  1. RUXOLITINIB [Suspect]
     Active Substance: RUXOLITINIB
     Indication: Polycythaemia vera
     Dosage: UNK
     Route: 048

REACTIONS (21)
  - Cough [Not Recovered/Not Resolved]
  - Product confusion [Unknown]
  - Influenza [Unknown]
  - Graft versus host disease [Unknown]
  - Insomnia [Unknown]
  - Illness [Unknown]
  - Pyrexia [Unknown]
  - Decreased appetite [Unknown]
  - Decreased immune responsiveness [Unknown]
  - Nausea [Unknown]
  - Pneumonia influenzal [Recovered/Resolved]
  - Infection [Unknown]
  - Malaise [Unknown]
  - Hyperhidrosis [Unknown]
  - Chest pain [Unknown]
  - Weight decreased [Unknown]
  - Product dose omission issue [Unknown]
  - Cytogenetic analysis abnormal [Unknown]
  - Pain [Unknown]
  - Thirst [Unknown]
  - Fatigue [Unknown]

NARRATIVE: CASE EVENT DATE: 20230806
